FAERS Safety Report 4710795-5 (Version None)
Quarter: 2005Q3

REPORT INFORMATION
  Report Type: 
  Country: None (occurrence: None)
  Receive Date: 20050706
  Receipt Date: 20050606
  Transmission Date: 20060218
  Serious: Yes (Other)
  Sender: FDA-Public Use
  Company Number: GBWYE722207JUN05

PATIENT
  Sex: Male

DRUGS (1)
  1. BENEFIX [Suspect]

REACTIONS (2)
  - COAGULATION FACTOR IX LEVEL DECREASED [None]
  - DRUG EFFECT DECREASED [None]
